FAERS Safety Report 18544891 (Version 1)
Quarter: 2020Q4

REPORT INFORMATION
  Report Type: Spontaneous
  Country: NL (occurrence: NL)
  Receive Date: 20201125
  Receipt Date: 20201125
  Transmission Date: 20210114
  Serious: Yes (Hospitalization)
  Sender: FDA-Public Use
  Company Number: NL-AUROBINDO-08-AUR-02491

PATIENT
  Age: 15 Month
  Sex: Male

DRUGS (5)
  1. CLOBAZAM. [Concomitant]
     Active Substance: CLOBAZAM
     Indication: INFLUENZA
     Dosage: 6 MILLIGRAM/KILOGRAM, ONCE A DAY
     Route: 065
  2. TOPIRAMATE. [Interacting]
     Active Substance: TOPIRAMATE
     Indication: SEVERE MYOCLONIC EPILEPSY OF INFANCY
     Dosage: 240 MILLIGRAM/KILOGRAM
     Route: 065
  3. VALPROATE SODIUM. [Interacting]
     Active Substance: VALPROATE SODIUM
     Indication: SEVERE MYOCLONIC EPILEPSY OF INFANCY
     Dosage: 31 MILLIGRAM/KILOGRAM, DAILY
     Route: 065
  4. PARACETAMOL [Suspect]
     Active Substance: ACETAMINOPHEN
     Indication: PYREXIA
     Dosage: 240 MILLIGRAM, FOUR TIMES/DAY
     Route: 065
  5. LEVOCARNITINE. [Concomitant]
     Active Substance: LEVOCARNITINE
     Indication: HEPATIC ENZYME INCREASED
     Dosage: 100 MILLIGRAM/KILOGRAM, ONCE A DAY
     Route: 065

REACTIONS (4)
  - Coagulation time prolonged [Recovered/Resolved]
  - Epilepsy [Recovered/Resolved]
  - Liver injury [Recovered/Resolved]
  - Drug interaction [Recovered/Resolved]
